FAERS Safety Report 7362306-6 (Version None)
Quarter: 2011Q1

REPORT INFORMATION
  Report Type: 
  Country: None (occurrence: None)
  Receive Date: 20110318
  Receipt Date: 20110131
  Transmission Date: 20110831
  Serious: Yes (Other)
  Sender: FDA-Public Use
  Company Number: CH-BAYER-2010-004634

PATIENT
  Sex: Male
  Weight: 92 kg

DRUGS (8)
  1. ISONIAZID [Suspect]
  2. BENADON [Concomitant]
  3. RIFAMPICIN [Concomitant]
  4. PYRAZINAMIDE [Concomitant]
  5. ETHAMBUTOL HYDROCHLORIDE [Suspect]
     Indication: MENINGITIS TUBERCULOUS
  6. AVELOX [Suspect]
     Indication: MENINGITIS TUBERCULOUS
     Dosage: 400 MG, QD
     Dates: start: 20101126
  7. PRADIF [Concomitant]
     Indication: BENIGN NEOPLASM OF PROSTATE
  8. DEXAMETHASONE [Concomitant]

REACTIONS (3)
  - POLYNEUROPATHY [None]
  - VISUAL ACUITY REDUCED [None]
  - OPTIC NEUROPATHY [None]
